FAERS Safety Report 8772724 (Version 2)
Quarter: 2013Q2

REPORT INFORMATION
  Report Type: Report from Study
  Country: DE (occurrence: DE)
  Receive Date: 20120907
  Receipt Date: 20130516
  Transmission Date: 20140414
  Serious: Yes (Hospitalization)
  Sender: FDA-Public Use
  Company Number: DE-ROCHE-1115779

PATIENT
  Sex: Male
  Weight: 97 kg

DRUGS (2)
  1. RITUXIMAB [Suspect]
     Indication: B-CELL LYMPHOMA
     Dosage: LAST DOSE PRIOR TO SAE ON 11/JUL/2012
     Route: 042
     Dates: start: 20111108
  2. RITUXIMAB [Suspect]
     Route: 042
     Dates: end: 20121114

REACTIONS (4)
  - Abdominal pain upper [Recovered/Resolved]
  - Hepatic enzyme increased [Recovered/Resolved]
  - Lung infiltration [Not Recovered/Not Resolved]
  - Bronchiolitis [Not Recovered/Not Resolved]
